FAERS Safety Report 13105473 (Version 1)
Quarter: 2017Q1

REPORT INFORMATION
  Report Type: Spontaneous
  Country: BR (occurrence: BR)
  Receive Date: 20170111
  Receipt Date: 20170111
  Transmission Date: 20170428
  Serious: Yes (Hospitalization, Other)
  Sender: FDA-Public Use
  Company Number: BR-BAYER-2015-189906

PATIENT
  Age: 21 Year
  Sex: Female

DRUGS (2)
  1. MIRENA [Suspect]
     Active Substance: LEVONORGESTREL
     Indication: CONTRACEPTION
     Dosage: 20 MCG/24HR, CONT
     Route: 015
     Dates: start: 20150202, end: 20150930
  2. MIRENA [Suspect]
     Active Substance: LEVONORGESTREL
     Indication: CONTRACEPTION

REACTIONS (10)
  - Abdominal pain [Recovered/Resolved]
  - Pregnancy with contraceptive device [Recovered/Resolved]
  - Haemorrhage in pregnancy [Recovered/Resolved]
  - Urinary tract infection [Recovered/Resolved]
  - Device difficult to use [None]
  - Amenorrhoea [Recovered/Resolved]
  - Premature separation of placenta [Recovered/Resolved]
  - Drug ineffective [None]
  - Blood pressure increased [Not Recovered/Not Resolved]
  - Device use error [None]

NARRATIVE: CASE EVENT DATE: 201503
